FAERS Safety Report 9506056 (Version 1)
Quarter: 2013Q1

REPORT INFORMATION
  Report Type: Spontaneous
  Country: US (occurrence: None)
  Receive Date: 20130206
  Receipt Date: 20130206
  Transmission Date: 20140127
  Serious: Yes (Other)
  Sender: FDA-Public Use
  Company Number: DAV-AE-MTX-12-06

PATIENT
  Sex: Male
  Weight: 83.92 kg

DRUGS (4)
  1. METHOTREXATE [Suspect]
     Indication: RHEUMATOID ARTHRITIS
     Dosage: 2.5 MG. / 4X / DAY
  2. TRAMADOL [Concomitant]
  3. DICLOGENAC [Concomitant]
  4. HYDROXYCHLORIDE [Concomitant]

REACTIONS (1)
  - Drug ineffective [None]
